FAERS Safety Report 6901741-4 (Version None)
Quarter: 2010Q3

REPORT INFORMATION
  Report Type: 
  Country: None (occurrence: None)
  Receive Date: 20100803
  Receipt Date: 20080311
  Transmission Date: 20110219
  Serious: No
  Sender: FDA-Public Use
  Company Number: US-PFIZER INC-2008023585

PATIENT
  Sex: Female

DRUGS (6)
  1. LYRICA [Suspect]
  2. SYNTHROID [Concomitant]
  3. METFORMIN HCL [Concomitant]
  4. BYETTA [Concomitant]
  5. MONTELUKAST SODIUM [Concomitant]
  6. DYAZIDE [Concomitant]

REACTIONS (1)
  - DYSGEUSIA [None]
